FAERS Safety Report 16469084 (Version 1)
Quarter: 2019Q3

REPORT INFORMATION
  Report Type: Spontaneous
  Country: US (occurrence: US)
  Receive Date: 20190621
  Receipt Date: 20190621
  Transmission Date: 20191004
  Serious: No
  Sender: FDA-Public Use
  Company Number: None

PATIENT

DRUGS (2)
  1. LACTULOSE. [Suspect]
     Active Substance: LACTULOSE
  2. SORBITOL. [Suspect]
     Active Substance: SORBITOL

REACTIONS (1)
  - Constipation [None]
